FAERS Safety Report 5883230-1 (Version None)
Quarter: 2008Q3

REPORT INFORMATION
  Report Type: 
  Country: None (occurrence: None)
  Receive Date: 20080910
  Receipt Date: 20080910
  Transmission Date: 20090109
  Serious: Yes (Disabling, Other)
  Sender: FDA-Public Use
  Company Number: None

PATIENT
  Sex: Male
  Weight: 113.3993 kg

DRUGS (2)
  1. LEVAQUIN [Suspect]
     Indication: BRONCHITIS
     Dates: start: 20080321, end: 20080404
  2. AVELOX [Suspect]

REACTIONS (7)
  - ARTHRALGIA [None]
  - ARTHROPATHY [None]
  - BRONCHITIS [None]
  - JOINT INJURY [None]
  - MUSCLE DISORDER [None]
  - TENDON INJURY [None]
  - TENDON RUPTURE [None]
